FAERS Safety Report 15762409 (Version 2)
Quarter: 2019Q1

REPORT INFORMATION
  Report Type: Spontaneous
  Country: JP (occurrence: JP)
  Receive Date: 20181226
  Receipt Date: 20190211
  Transmission Date: 20190417
  Serious: Yes (Other)
  Sender: FDA-Public Use
  Company Number: JP-JNJFOC-20181229748

PATIENT
  Age: 8 Decade
  Sex: Female

DRUGS (7)
  1. EDIROL [Concomitant]
     Active Substance: ELDECALCITOL
     Route: 048
  2. ETODOLAC. [Concomitant]
     Active Substance: ETODOLAC
     Route: 048
  3. SPIRONOLACTONE. [Concomitant]
     Active Substance: SPIRONOLACTONE
     Route: 048
  4. TRAMADOL HYDROCHLORIDE AND ACETAMINOPHEN [Suspect]
     Active Substance: ACETAMINOPHEN\TRAMADOL HYDROCHLORIDE
     Indication: PAIN
     Route: 048
  5. IMIDAPRIL HYDROCHLORIDE [Concomitant]
     Active Substance: IMIDAPRIL HYDROCHLORIDE
     Route: 048
  6. XYLOCAINE [Concomitant]
     Active Substance: LIDOCAINE HYDROCHLORIDE
     Route: 048
  7. FAMOTIDINE. [Concomitant]
     Active Substance: FAMOTIDINE
     Route: 065

REACTIONS (2)
  - Loss of consciousness [Recovered/Resolved]
  - Weight decreased [Unknown]

NARRATIVE: CASE EVENT DATE: 20181219
